FAERS Safety Report 4285436-4 (Version None)
Quarter: 2004Q1

REPORT INFORMATION
  Report Type: 
  Country: None (occurrence: None)
  Receive Date: 20040202
  Receipt Date: 20040120
  Transmission Date: 20041129
  Serious: Yes (Hospitalization)
  Sender: FDA-Public Use
  Company Number: 2003-BP-03478BP

PATIENT
  Age: 69 Year
  Sex: Female

DRUGS (9)
  1. MICARDIS [Suspect]
     Indication: CEREBROVASCULAR ACCIDENT PROPHYLAXIS
     Dosage: NR;PO
     Route: 048
     Dates: end: 20030323
  2. MICARDIS [Suspect]
     Indication: MYOCARDIAL INFARCTION
     Dosage: NR;PO
     Route: 048
     Dates: end: 20030323
  3. RAMIPRIL [Suspect]
     Indication: CEREBROVASCULAR ACCIDENT PROPHYLAXIS
     Dosage: NR (NR); PO
     Route: 048
     Dates: end: 20030323
  4. RAMIPRIL [Suspect]
     Indication: MYOCARDIAL INFARCTION
     Dosage: NR (NR); PO
     Route: 048
     Dates: end: 20030323
  5. ASPIRIN [Concomitant]
  6. METOPROLOL [Concomitant]
  7. TRIMETHAZIDINE [Concomitant]
  8. HEPARIN [Concomitant]
  9. FAMOTIDIN [Concomitant]

REACTIONS (4)
  - ANGINA PECTORIS [None]
  - DIZZINESS [None]
  - HYPOTENSION [None]
  - NAUSEA [None]
